FAERS Safety Report 4994288-6 (Version None)
Quarter: 2006Q1

REPORT INFORMATION
  Report Type: 
  Country: None (occurrence: None)
  Receive Date: 20060314
  Receipt Date: 20050708
  Transmission Date: 20060701
  Serious: Yes (Other)
  Sender: FDA-Public Use
  Company Number: 200512359BCC

PATIENT
  Age: 55 Year
  Sex: Female
  Weight: 85.7298 kg

DRUGS (5)
  1. ALEVE (CAPLET) [Suspect]
     Indication: HEADACHE
     Dosage: 440 MG, TOTAL DAILY, ORAL
     Route: 048
     Dates: start: 20050605
  2. ALEVE (CAPLET) [Suspect]
     Indication: PAIN
     Dosage: 440 MG, TOTAL DAILY, ORAL
     Route: 048
     Dates: start: 20050605
  3. PRILOSEC [Concomitant]
  4. ARTHRITIS MEDICATION [Concomitant]
  5. DICLOFENAC POTASSIUM [Concomitant]

REACTIONS (6)
  - HYPERSENSITIVITY [None]
  - OEDEMA PERIPHERAL [None]
  - PRURITUS [None]
  - SWELLING FACE [None]
  - SWOLLEN TONGUE [None]
  - URTICARIA [None]
